FAERS Safety Report 5294540-3 (Version None)
Quarter: 2007Q2

REPORT INFORMATION
  Report Type: 
  Country: None (occurrence: None)
  Receive Date: 20070412
  Receipt Date: 20070404
  Transmission Date: 20071010
  Serious: Yes (Other)
  Sender: FDA-Public Use
  Company Number: US-JNJFOC-20070401047

PATIENT
  Age: 78 Year
  Sex: Male

DRUGS (3)
  1. LEVAQUIN [Suspect]
     Indication: DRUG USE FOR UNKNOWN INDICATION
     Route: 065
  2. BETA BLOCKER [Concomitant]
     Route: 065
  3. DIURETIC [Concomitant]
     Route: 065

REACTIONS (2)
  - DYSPNOEA [None]
  - ELECTROCARDIOGRAM QT PROLONGED [None]
